FAERS Safety Report 5033828-8 (Version None)
Quarter: 2006Q2

REPORT INFORMATION
  Report Type: 
  Country: None (occurrence: None)
  Receive Date: 20060620
  Receipt Date: 20060605
  Transmission Date: 20061013
  Serious: Yes (Disabling)
  Sender: FDA-Public Use
  Company Number: 2006RR-02574

PATIENT
  Age: 52 Year
  Sex: Female

DRUGS (1)
  1. GABAPENTIN [Suspect]
     Indication: POLYNEUROPATHY
     Dosage: SEE IMAGE

REACTIONS (3)
  - DIZZINESS [None]
  - VISUAL DISTURBANCE [None]
  - VISUAL FIELD DEFECT [None]
